FAERS Safety Report 25047492 (Version 1)
Quarter: 2025Q1

REPORT INFORMATION
  Report Type: Report from Study
  Country: CH (occurrence: CH)
  Receive Date: 20250306
  Receipt Date: 20250306
  Transmission Date: 20250409
  Serious: Yes (Life-Threatening, Other)
  Sender: NOVARTIS
  Company Number: CH-002147023-NVSC2025CH038402

PATIENT
  Age: 63 Year
  Sex: Female
  Weight: 70.2 kg

DRUGS (9)
  1. KISQALI [Suspect]
     Active Substance: RIBOCICLIB
     Indication: Hormone receptor positive HER2 negative breast cancer
     Dosage: 400 MG, QD (3 WEEKS ON, 1 WEEK OFF)
     Route: 048
     Dates: start: 20211230, end: 20241129
  2. KISQALI [Suspect]
     Active Substance: RIBOCICLIB
     Dosage: 600 MG, QD (DAY 21, DAY 22-28 OFF)
     Route: 048
     Dates: start: 20211231
  3. KISQALI [Suspect]
     Active Substance: RIBOCICLIB
     Route: 065
     Dates: start: 20220301
  4. KISQALI [Suspect]
     Active Substance: RIBOCICLIB
     Route: 048
     Dates: start: 20230719, end: 20230815
  5. KISQALI [Suspect]
     Active Substance: RIBOCICLIB
     Route: 065
     Dates: end: 20240403
  6. KISQALI [Suspect]
     Active Substance: RIBOCICLIB
     Route: 065
     Dates: end: 20240709
  7. KISQALI [Suspect]
     Active Substance: RIBOCICLIB
     Route: 048
     Dates: end: 20241130
  8. KISQALI [Suspect]
     Active Substance: RIBOCICLIB
     Route: 048
     Dates: start: 20241212
  9. LETROZOLE [Suspect]
     Active Substance: LETROZOLE
     Indication: Hormone receptor positive HER2 negative breast cancer
     Dosage: 2.5 MG, QD
     Route: 048
     Dates: start: 20211123

REACTIONS (13)
  - Neutrophil count decreased [Recovered/Resolved]
  - Device related thrombosis [Recovered/Resolved]
  - Leukopenia [Recovered/Resolved]
  - Neutropenia [Recovered/Resolved]
  - White blood cell count decreased [Recovered/Resolved]
  - Nasopharyngitis [Recovered/Resolved]
  - Chest pain [Recovered/Resolved]
  - Oropharyngeal pain [Recovered/Resolved]
  - Back pain [Recovered/Resolved]
  - Musculoskeletal discomfort [Recovered/Resolved]
  - Non-cardiac chest pain [Recovered/Resolved]
  - Spinal osteoarthritis [Unknown]
  - Scoliosis [Unknown]

NARRATIVE: CASE EVENT DATE: 20220127
